FAERS Safety Report 14656686 (Version 2)
Quarter: 2018Q1

REPORT INFORMATION
  Report Type: Report from Study
  Country: PT (occurrence: PT)
  Receive Date: 20180319
  Receipt Date: 20180330
  Transmission Date: 20180509
  Serious: Yes (Disabling)
  Sender: FDA-Public Use
  Company Number: PT-B.I. PHARMACEUTICALS,INC./RIDGEFIELD-2018-BI-008646

PATIENT
  Age: 54 Year
  Sex: Male

DRUGS (4)
  1. TAMSULOSINA [Suspect]
     Active Substance: TAMSULOSIN HYDROCHLORIDE
     Route: 065
  2. TAMSULOSINA [Suspect]
     Active Substance: TAMSULOSIN HYDROCHLORIDE
     Indication: BENIGN PROSTATIC HYPERPLASIA
     Route: 048
  3. VIGANTOL [Concomitant]
     Active Substance: CHOLECALCIFEROL
     Indication: PRODUCT USED FOR UNKNOWN INDICATION
     Route: 065
  4. GILENYA [Suspect]
     Active Substance: FINGOLIMOD HYDROCHLORIDE
     Indication: MULTIPLE SCLEROSIS
     Route: 048
     Dates: start: 20131105

REACTIONS (14)
  - Anal incontinence [Not Recovered/Not Resolved]
  - Sleep disorder [Unknown]
  - Anxiety [Unknown]
  - Hypoaesthesia [Not Recovered/Not Resolved]
  - Gastrointestinal polyp [Unknown]
  - Asthenia [Recovering/Resolving]
  - Chills [Recovering/Resolving]
  - Stress [Unknown]
  - Hypertension [Unknown]
  - Balance disorder [Recovering/Resolving]
  - Urinary incontinence [Not Recovered/Not Resolved]
  - Muscle tightness [Recovering/Resolving]
  - Ear disorder [Unknown]
  - Gait disturbance [Not Recovered/Not Resolved]
